FAERS Safety Report 8972356 (Version 1)
Quarter: 2012Q4

REPORT INFORMATION
  Report Type: 
  Country: US (occurrence: US)
  Receive Date: 20121218
  Receipt Date: 20121218
  Transmission Date: 20130627
  Serious: Yes (Hospitalization, Other)
  Sender: FDA-Public Use
  Company Number: CHPA2012US024819

PATIENT
  Age: 75 Year
  Sex: Female

DRUGS (6)
  1. NUPERCAINAL HEMORRHOIDAL/ANES OINTMENT [Suspect]
     Indication: HAEMORRHOIDS
     Dosage: One to four times per day, as needed
     Route: 061
     Dates: start: 1962
  2. ALPHA LIPOIC ACID [Concomitant]
     Dosage: 300 mg, BID
     Dates: start: 201206
  3. BROMELAIN [Concomitant]
     Dosage: Unk, Unk
  4. FISH OIL [Concomitant]
     Dosage: Unk, Unk
  5. E VITAMIN E [Concomitant]
     Dosage: Unk, Unk
  6. GINKO BILOBA [Concomitant]
     Dosage: Unk, Unk

REACTIONS (25)
  - Atrial fibrillation [Not Recovered/Not Resolved]
  - Arthritis [Not Recovered/Not Resolved]
  - Cellulitis [Recovered/Resolved]
  - Tinea pedis [Recovered/Resolved]
  - Fungal infection [Recovered/Resolved]
  - Arthralgia [Unknown]
  - Vaginal infection [Recovered/Resolved]
  - Thyroid neoplasm [Not Recovered/Not Resolved]
  - Intervertebral disc protrusion [Unknown]
  - Oedema peripheral [Recovered/Resolved]
  - Pain [Recovered/Resolved]
  - Erythema [Recovered/Resolved]
  - Walking aid user [Recovered/Resolved]
  - Haemorrhoids [Recovered/Resolved]
  - Nerve injury [Unknown]
  - Osteoporosis [Unknown]
  - Fall [Unknown]
  - Ligament sprain [Unknown]
  - Constipation [Recovered/Resolved]
  - Stomatitis [Recovered/Resolved]
  - Headache [Recovered/Resolved]
  - Glossodynia [Recovered/Resolved]
  - Tongue disorder [Recovered/Resolved]
  - Expired drug administered [Unknown]
  - Exposure during pregnancy [Unknown]
